FAERS Safety Report 23680368 (Version 1)
Quarter: 2024Q1

REPORT INFORMATION
  Report Type: Spontaneous
  Country: US (occurrence: US)
  Receive Date: 20240328
  Receipt Date: 20240328
  Transmission Date: 20240410
  Serious: No
  Sender: FDA-Public Use
  Company Number: US-TEVA-VS-3161224

PATIENT
  Age: 73 Year
  Sex: Male

DRUGS (5)
  1. VENLAFAXINE [Suspect]
     Active Substance: VENLAFAXINE HYDROCHLORIDE
     Indication: Hot flush
     Route: 048
  2. ORGOVYX [Suspect]
     Active Substance: RELUGOLIX
     Indication: Neoplasm malignant
     Dosage: ONGOING
     Route: 048
     Dates: start: 20230225
  3. ORGOVYX [Suspect]
     Active Substance: RELUGOLIX
     Indication: Neoplasm malignant
     Route: 065
  4. ORGOVYX [Suspect]
     Active Substance: RELUGOLIX
     Indication: Neoplasm malignant
     Route: 065
  5. BLACK COHOSH [Concomitant]
     Active Substance: BLACK COHOSH
     Indication: Product used for unknown indication
     Route: 065

REACTIONS (8)
  - Hot flush [Not Recovered/Not Resolved]
  - Peripheral venous disease [Unknown]
  - Meniscus injury [Unknown]
  - Adverse drug reaction [Unknown]
  - Product dose omission in error [Unknown]
  - Blood glucose increased [Unknown]
  - Fatigue [Unknown]
  - Peripheral swelling [Unknown]
